FAERS Safety Report 8392882-6 (Version None)
Quarter: 2012Q2

REPORT INFORMATION
  Report Type: 
  Country: None (occurrence: None)
  Receive Date: 20120529
  Receipt Date: 20111227
  Transmission Date: 20120825
  Serious: No
  Sender: FDA-Public Use
  Company Number: US-MYLANLABS-2011S1026366

PATIENT
  Age: 67 Year
  Sex: Female

DRUGS (3)
  1. ORAL ANTIDIABETICS [Concomitant]
     Indication: DIABETES MELLITUS
  2. ZOLPIDEM TARTRATE [Suspect]
     Indication: INSOMNIA
     Route: 048
     Dates: start: 20111001
  3. BLOOD PRESSURE MEDICATION [Concomitant]
     Indication: BLOOD PRESSURE

REACTIONS (2)
  - DRUG INEFFECTIVE [None]
  - INSOMNIA [None]
